FAERS Safety Report 7494999-7 (Version None)
Quarter: 2011Q2

REPORT INFORMATION
  Report Type: 
  Country: None (occurrence: None)
  Receive Date: 20110520
  Receipt Date: 20110516
  Transmission Date: 20111010
  Serious: Yes (Hospitalization, Other)
  Sender: FDA-Public Use
  Company Number: US-AMGEN-USASP2011025461

PATIENT
  Age: 69 Year
  Sex: Female

DRUGS (8)
  1. VANCOMYCIN [Concomitant]
  2. RITUXAN [Concomitant]
     Indication: IDIOPATHIC THROMBOCYTOPENIC PURPURA
  3. NPLATE [Suspect]
     Indication: IDIOPATHIC THROMBOCYTOPENIC PURPURA
     Dates: start: 20101209
  4. METOPROLOL SUCCINATE [Concomitant]
  5. COUMADIN [Concomitant]
  6. CORTICOSTEROIDS [Concomitant]
     Indication: IDIOPATHIC THROMBOCYTOPENIC PURPURA
  7. ZYPREXA [Concomitant]
  8. COZAAR [Concomitant]

REACTIONS (4)
  - POST THROMBOTIC SYNDROME [None]
  - CELLULITIS [None]
  - STASIS DERMATITIS [None]
  - OEDEMA PERIPHERAL [None]
